FAERS Safety Report 23078091 (Version 2)
Quarter: 2023Q4

REPORT INFORMATION
  Report Type: Spontaneous
  Country: FR (occurrence: FR)
  Receive Date: 20231018
  Receipt Date: 20231117
  Transmission Date: 20240109
  Serious: Yes (Death, Hospitalization)
  Sender: FDA-Public Use
  Company Number: None

PATIENT
  Age: 62 Year
  Sex: Male

DRUGS (5)
  1. HYDROXYUREA [Suspect]
     Active Substance: HYDROXYUREA
     Indication: Polycythaemia vera
     Dosage: 3 GELS ON MONDAY THEN 2/DAY FOR THE REST OF THE WEEK
     Route: 048
     Dates: start: 201508, end: 20230817
  2. KARDEGIC [Suspect]
     Active Substance: ASPIRIN DL-LYSINE
     Indication: Polycythaemia vera
     Dosage: IN SACHET ?DAILY DOSE: 1 DOSAGE FORM
     Route: 048
     Dates: start: 201508, end: 20230817
  3. KARDEGIC [Suspect]
     Active Substance: ASPIRIN DL-LYSINE
     Indication: Product used for unknown indication
     Dosage: IN SACHET ?DAILY DOSE: 1 DOSAGE FORM
     Route: 048
     Dates: start: 201508, end: 20230817
  4. NAPROXEN SODIUM [Suspect]
     Active Substance: NAPROXEN SODIUM
     Indication: Sciatica
     Dosage: DAILY DOSE: 2 DOSAGE FORM
     Route: 048
     Dates: start: 20230801, end: 20230817
  5. NAPROXEN SODIUM [Suspect]
     Active Substance: NAPROXEN SODIUM
     Indication: Polycythaemia vera
     Dosage: DAILY DOSE: 2 DOSAGE FORM
     Route: 048
     Dates: start: 20230801, end: 20230817

REACTIONS (3)
  - Renal papillary necrosis [Fatal]
  - Pancytopenia [Fatal]
  - Sepsis [Unknown]

NARRATIVE: CASE EVENT DATE: 20230801
